FAERS Safety Report 15465486 (Version 1)
Quarter: 2018Q4

REPORT INFORMATION
  Report Type: Spontaneous
  Country: US (occurrence: US)
  Receive Date: 20181004
  Receipt Date: 20181004
  Transmission Date: 20190204
  Serious: No
  Sender: FDA-Public Use
  Company Number: US-MAYNE PHARMA-2018MYN000528

PATIENT

DRUGS (2)
  1. FABIOR [Suspect]
     Active Substance: TAZAROTENE
     Indication: ACNE
     Dosage: ^COIN^ SIDE AMOUNT EVERY OTHER NIGHT
     Route: 061
     Dates: start: 20180323, end: 20180323
  2. CETAPHIL                           /00498501/ [Concomitant]
     Dosage: UNK
     Dates: start: 20180319

REACTIONS (4)
  - Application site pruritus [Recovering/Resolving]
  - Application site dermatitis [Recovering/Resolving]
  - Application site erythema [Recovering/Resolving]
  - Application site swelling [Recovering/Resolving]

NARRATIVE: CASE EVENT DATE: 20180323
